FAERS Safety Report 17751220 (Version 1)
Quarter: 2020Q2

REPORT INFORMATION
  Report Type: Spontaneous
  Country: GB (occurrence: GB)
  Receive Date: 20200506
  Receipt Date: 20200506
  Transmission Date: 20200714
  Serious: Yes (Disabling, Other)
  Sender: FDA-Public Use
  Company Number: NVSC2020GB074451

PATIENT
  Age: 63 Year
  Sex: Female

DRUGS (2)
  1. NILOTINIB [Suspect]
     Active Substance: NILOTINIB
     Dosage: 300 MG
     Route: 065
  2. NILOTINIB [Suspect]
     Active Substance: NILOTINIB
     Indication: CHRONIC MYELOID LEUKAEMIA
     Dosage: UNK
     Route: 065
     Dates: end: 201912

REACTIONS (12)
  - Cough [Recovering/Resolving]
  - Dysphonia [Recovering/Resolving]
  - Muscle spasms [Unknown]
  - Musculoskeletal pain [Recovered/Resolved]
  - Myalgia [Unknown]
  - Spirometry abnormal [Not Recovered/Not Resolved]
  - Withdrawal syndrome [Unknown]
  - Malaise [Unknown]
  - Interstitial lung disease [Unknown]
  - Dyspnoea [Recovering/Resolving]
  - Fatigue [Unknown]
  - Arthralgia [Unknown]

NARRATIVE: CASE EVENT DATE: 201912
